FAERS Safety Report 22315629 (Version 2)
Quarter: 2023Q2

REPORT INFORMATION
  Report Type: Report from Study
  Country: CA (occurrence: CA)
  Receive Date: 20230512
  Receipt Date: 20230626
  Transmission Date: 20230721
  Serious: Yes (Death)
  Sender: FDA-Public Use
  Company Number: CA-TAIHOP-2023-002170

PATIENT
  Age: 55 Year
  Sex: Female

DRUGS (1)
  1. LONSURF [Suspect]
     Active Substance: TIPIRACIL HYDROCHLORIDE\TRIFLURIDINE
     Indication: Colorectal cancer metastatic
     Dosage: DOSAGE, FREQUENCY AND CYCLE UNKNOWN
     Route: 048
     Dates: start: 20230214

REACTIONS (4)
  - Disease progression [Fatal]
  - Nausea [Unknown]
  - Vomiting [Unknown]
  - Asthenia [Unknown]

NARRATIVE: CASE EVENT DATE: 20230321
